FAERS Safety Report 5259420-8 (Version None)
Quarter: 2007Q1

REPORT INFORMATION
  Report Type: 
  Country: None (occurrence: None)
  Receive Date: 20070308
  Receipt Date: 20070227
  Transmission Date: 20070707
  Serious: Yes (Hospitalization, Other)
  Sender: FDA-Public Use
  Company Number: JP-ABBOTT-06P-087-0350338-00

PATIENT
  Sex: Male

DRUGS (17)
  1. KALETRA [Suspect]
     Indication: HIV INFECTION
     Route: 048
     Dates: start: 20050930, end: 20051102
  2. KALETRA [Suspect]
     Route: 048
     Dates: start: 20051107, end: 20051201
  3. KALETRA [Suspect]
     Route: 048
     Dates: start: 20060111, end: 20060124
  4. KALETRA [Suspect]
     Route: 048
     Dates: start: 20060322
  5. LAMIVUDINE [Concomitant]
     Indication: HIV INFECTION
     Route: 048
     Dates: start: 20050930, end: 20051102
  6. LAMIVUDINE [Concomitant]
     Route: 048
     Dates: start: 20051107, end: 20051201
  7. LAMIVUDINE [Concomitant]
     Route: 048
     Dates: start: 20060111, end: 20060124
  8. LAMIVUDINE [Concomitant]
     Route: 048
     Dates: start: 20060322
  9. STAVUDINE [Concomitant]
     Indication: HIV INFECTION
     Route: 048
     Dates: start: 20050930, end: 20051102
  10. STAVUDINE [Concomitant]
     Route: 048
     Dates: start: 20051107, end: 20051201
  11. STAVUDINE [Concomitant]
     Route: 048
     Dates: start: 20060111, end: 20060124
  12. STAVUDINE [Concomitant]
     Route: 048
     Dates: start: 20060322
  13. BACTRIM [Concomitant]
     Indication: ANTIFUNGAL PROPHYLAXIS
     Route: 048
     Dates: start: 20050912, end: 20051201
  14. FLUNITRAZEPAM [Concomitant]
     Indication: INSOMNIA
     Route: 048
     Dates: start: 20051014, end: 20051020
  15. FLUNITRAZEPAM [Concomitant]
     Route: 048
     Dates: start: 20051021, end: 20051101
  16. CLONAZEPAM [Concomitant]
     Indication: AFFECT LABILITY
     Route: 048
     Dates: start: 20051021, end: 20051101
  17. MAGNESIUM OXIDE [Concomitant]
     Indication: CONSTIPATION PROPHYLAXIS
     Route: 048
     Dates: start: 20051114, end: 20051224

REACTIONS (5)
  - ABDOMINAL PAIN [None]
  - ENTEROCOLITIS [None]
  - NAUSEA [None]
  - SUBILEUS [None]
  - VOMITING [None]
